FAERS Safety Report 8908968 (Version 6)
Quarter: 2013Q4

REPORT INFORMATION
  Report Type: Report from Study
  Country: JP (occurrence: JP)
  Receive Date: 20121114
  Receipt Date: 20131230
  Transmission Date: 20140711
  Serious: Yes (Life-Threatening, Other)
  Sender: FDA-Public Use
  Company Number: JP-VERTEX PHARMACEUTICAL INC.-AE-2012-010174

PATIENT
  Age: 64 Year
  Sex: Female

DRUGS (22)
  1. VX-950 (TELAPREVIR) [Suspect]
     Indication: CHRONIC HEPATITIS C
     Dosage: 2250 MG, QD
     Route: 048
     Dates: start: 20120511, end: 20120719
  2. REBETOL [Suspect]
     Indication: CHRONIC HEPATITIS C
     Dosage: 800 MG, QD
     Route: 048
     Dates: start: 20120511, end: 20120524
  3. REBETOL [Suspect]
     Dosage: 600 MG, QD
     Route: 048
     Dates: start: 20120525, end: 20120615
  4. REBETOL [Suspect]
     Dosage: 400 MG, QD
     Route: 048
     Dates: start: 20120616, end: 20120711
  5. REBETOL [Suspect]
     Dosage: 200 MG, QD
     Route: 048
     Dates: start: 20120612, end: 20120719
  6. PEGINTRON [Suspect]
     Indication: CHRONIC HEPATITIS C
     Dosage: 1.5 ?G/KG, QW
     Route: 058
     Dates: start: 20120511, end: 20120719
  7. PREDNISOLONE [Suspect]
     Indication: RASH
     Dosage: 20 MG, QD
     Route: 048
     Dates: start: 20120520, end: 20120724
  8. PREDNISOLONE [Suspect]
     Dosage: 10 MG, QD
     Route: 048
     Dates: end: 20120912
  9. PARIET [Concomitant]
     Dosage: 10 MG, QD
     Route: 048
     Dates: start: 20120510, end: 20120720
  10. PARIET [Concomitant]
     Dosage: 10 MG, QD
     Route: 048
  11. NAIXAN [Concomitant]
     Dosage: 300 MG, QD
     Route: 048
     Dates: start: 20120510, end: 20120718
  12. GLYCORAN [Concomitant]
     Dosage: 750 MG, UNK
     Route: 048
     Dates: start: 20120621, end: 20120720
  13. URSO [Concomitant]
     Dosage: 300 MG, UNK
     Route: 048
     Dates: end: 20120719
  14. AMARYL [Concomitant]
     Dosage: 1 MG, QD
     Route: 048
     Dates: start: 20120608, end: 20120614
  15. AMARYL [Concomitant]
     Dosage: 3 MG, QD
     Route: 048
     Dates: start: 20120615, end: 20120720
  16. JANUVIA [Concomitant]
     Dosage: 50 MG, UNK
     Route: 048
     Dates: start: 20120601, end: 20120720
  17. JANUVIA [Concomitant]
     Dosage: 50 MG, QD
     Route: 048
  18. SELBEX [Concomitant]
     Dosage: 100 MG, QD
     Route: 048
     Dates: start: 20120520, end: 20120720
  19. SELBEX [Concomitant]
     Dosage: 100 MG, QD
     Route: 048
     Dates: end: 20120926
  20. XYZAL [Concomitant]
     Dosage: 10 MG, QD
     Route: 048
     Dates: start: 20120906, end: 20120912
  21. DIOVAN [Concomitant]
     Dosage: 80 MG, QD
     Route: 048
     Dates: start: 20120906
  22. TENORMIN [Concomitant]
     Dosage: 50 MG, QD
     Route: 048
     Dates: start: 20120906

REACTIONS (6)
  - Haemoglobin decreased [Recovered/Resolved]
  - Abscess neck [Recovered/Resolved]
  - Diabetes mellitus [Recovered/Resolved]
  - Peritonsillar abscess [Unknown]
  - Bone marrow failure [Unknown]
  - Muscle abscess [Unknown]
